FAERS Safety Report 25705334 (Version 1)
Quarter: 2025Q3

REPORT INFORMATION
  Report Type: Spontaneous
  Country: US (occurrence: None)
  Receive Date: 20250819
  Receipt Date: 20250819
  Transmission Date: 20251020
  Serious: Yes (Hospitalization)
  Sender: FDA-CTU
  Company Number: None

PATIENT
  Age: 66 Year
  Sex: Female

DRUGS (1)
  1. LENALIDOMIDE [Suspect]
     Active Substance: LENALIDOMIDE
     Indication: Plasma cell myeloma
     Dosage: 25MG QD ORAL ?
     Route: 048
     Dates: start: 20250729

REACTIONS (5)
  - Rash papular [None]
  - Rash papular [None]
  - Erythema [None]
  - Skin ulcer [None]
  - Drug eruption [None]

NARRATIVE: CASE EVENT DATE: 20250801
